FAERS Safety Report 4336164-8 (Version None)
Quarter: 2004Q2

REPORT INFORMATION
  Report Type: 
  Country: None (occurrence: None)
  Receive Date: 20040407
  Receipt Date: 20040324
  Transmission Date: 20050107
  Serious: Yes (Death, Hospitalization)
  Sender: FDA-Public Use
  Company Number: 2004-BP-00058NB

PATIENT
  Age: 63 Year
  Sex: Female

DRUGS (5)
  1. MOBIC [Suspect]
     Indication: RHEUMATOID ARTHRITIS
     Dosage: 10 MG PO
     Route: 048
     Dates: start: 20020918, end: 20021119
  2. PREDNISOLONE [Suspect]
     Indication: RHEUMATOID ARTHRITIS
     Dosage: PO
     Route: 048
     Dates: start: 20020213, end: 20021119
  3. BREDININ (MIZORIBINE) [Suspect]
     Indication: RHEUMATOID ARTHRITIS
     Dosage: PO
     Route: 048
     Dates: start: 20020918, end: 20021119
  4. MUCOSTA (REBAMIPINE) [Suspect]
     Indication: PROPHYLAXIS AGAINST GASTROINTESTINAL ULCER
     Dosage: PO
     Route: 048
     Dates: start: 20020918, end: 20021119
  5. SOSEGON (PENTAZOCINE) [Suspect]
     Indication: ARTHRALGIA
     Dosage: IM
     Dates: start: 20021120

REACTIONS (3)
  - ARTHRALGIA [None]
  - PYREXIA [None]
  - SUDDEN DEATH [None]
